FAERS Safety Report 4608506-7 (Version None)
Quarter: 2005Q1

REPORT INFORMATION
  Report Type: 
  Country: None (occurrence: None)
  Receive Date: 20050315
  Receipt Date: 20050304
  Transmission Date: 20050727
  Serious: Yes (Hospitalization, Other)
  Sender: FDA-Public Use
  Company Number: 200511920US

PATIENT
  Age: 83 Year
  Sex: Female

DRUGS (2)
  1. LOVENOX [Suspect]
     Indication: DEEP VEIN THROMBOSIS
     Dates: start: 20041122, end: 20050106
  2. HEPARIN [Concomitant]
     Indication: DEEP VEIN THROMBOSIS
     Dosage: DOSE: UNK

REACTIONS (6)
  - ABDOMINAL HAEMATOMA [None]
  - FAECAL OCCULT BLOOD POSITIVE [None]
  - FALL [None]
  - FISTULA [None]
  - HYPOTENSION [None]
  - SUBCUTANEOUS HAEMATOMA [None]
